FAERS Safety Report 9463030 (Version 1)
Quarter: 2013Q3

REPORT INFORMATION
  Report Type: Spontaneous
  Country: CN (occurrence: CN)
  Receive Date: 20130816
  Receipt Date: 20130816
  Transmission Date: 20140515
  Serious: Yes (Hospitalization, Other)
  Sender: FDA-Public Use
  Company Number: CN-ASTRAZENECA-2013SE62795

PATIENT
  Sex: Female

DRUGS (4)
  1. PLENDIL [Suspect]
     Indication: HYPERTENSION
     Route: 048
  2. PLENDIL [Suspect]
     Indication: HYPERTENSION
  3. LEVAMLODIPINE BESYLATE [Concomitant]
     Indication: HYPERTENSION
     Route: 065
  4. INDAPAMIDE [Concomitant]
     Indication: HYPERTENSION
     Route: 065

REACTIONS (2)
  - Blood pressure inadequately controlled [Unknown]
  - Drug ineffective [Unknown]
